FAERS Safety Report 8502239-2 (Version None)
Quarter: 2012Q2

REPORT INFORMATION
  Report Type: 
  Country: None (occurrence: None)
  Receive Date: 20120405
  Receipt Date: 20100505
  Transmission Date: 20120825
  Serious: Yes (Disabling)
  Sender: FDA-Public Use
  Company Number: PHHY2010US30502

PATIENT
  Age: 53 Year
  Sex: Female
  Weight: 134 kg

DRUGS (8)
  1. FENTANYL [Concomitant]
  2. AMITIZA [Concomitant]
  3. WELLBUTRIN [Concomitant]
  4. ZEGERID [Concomitant]
  5. KLONOPIN [Concomitant]
  6. RECLAST [Suspect]
     Indication: OSTEOPOROSIS
     Dosage: 5 MG YEARLY, INTRAVENOUS
     Route: 042
     Dates: start: 20100424
  7. VICODIN [Concomitant]
  8. ELAVIL [Concomitant]

REACTIONS (2)
  - ARTHRALGIA [None]
  - BONE PAIN [None]
